FAERS Safety Report 19217732 (Version 1)
Quarter: 2021Q2

REPORT INFORMATION
  Report Type: Spontaneous
  Country: US (occurrence: US)
  Receive Date: 20210505
  Receipt Date: 20210505
  Transmission Date: 20210717
  Serious: No
  Sender: FDA-Public Use
  Company Number: US-VER-202100046

PATIENT

DRUGS (2)
  1. TRELSTAR [Suspect]
     Active Substance: TRIPTORELIN PAMOATE
     Dosage: 1X/MONTH
     Route: 065
  2. TRELSTAR [Suspect]
     Active Substance: TRIPTORELIN PAMOATE
     Dosage: 4X/YEAR (^3 MONTH^)
     Route: 065

REACTIONS (2)
  - Off label use [Unknown]
  - Hot flush [Unknown]
